FAERS Safety Report 8496312-5 (Version None)
Quarter: 2012Q3

REPORT INFORMATION
  Report Type: 
  Country: None (occurrence: None)
  Receive Date: 20120709
  Receipt Date: 20120626
  Transmission Date: 20120928
  Serious: Yes (Hospitalization)
  Sender: FDA-Public Use
  Company Number: JP-UCBSA-059705

PATIENT
  Age: 35 Year
  Sex: Male
  Weight: 62.8 kg

DRUGS (5)
  1. NOBELBAR [Concomitant]
     Route: 042
  2. PHENYTOIN SODIUM CAP [Concomitant]
     Dosage: DAILY DOSE: 300 MG
     Route: 048
     Dates: start: 20120501
  3. KEPPRA [Suspect]
     Indication: PARTIAL SEIZURES
     Route: 048
     Dates: start: 20120526, end: 20120528
  4. PREDNISOLONE [Suspect]
     Route: 048
     Dates: start: 20120602
  5. SOLU-MEDROL [Suspect]
     Indication: PACHYMENINGITIS
     Route: 042
     Dates: start: 20120529, end: 20120601

REACTIONS (1)
  - PSYCHIATRIC SYMPTOM [None]
